FAERS Safety Report 16851338 (Version 1)
Quarter: 2019Q3

REPORT INFORMATION
  Report Type: Spontaneous
  Country: US (occurrence: US)
  Receive Date: 20190925
  Receipt Date: 20190925
  Transmission Date: 20191005
  Serious: Yes (Other)
  Sender: FDA-Public Use
  Company Number: US-PFIZER INC-2019413216

PATIENT
  Sex: Female

DRUGS (1)
  1. LYRICA [Suspect]
     Active Substance: PREGABALIN
     Dosage: 200 MG, DAILY (LYRICA 200 MG / QTY 90 / DAY SUPPLY 90)

REACTIONS (3)
  - Pain [Unknown]
  - Gait disturbance [Unknown]
  - Neuropathy peripheral [Unknown]
